FAERS Safety Report 8596620-3 (Version None)
Quarter: 2012Q3

REPORT INFORMATION
  Report Type: 
  Country: None (occurrence: None)
  Receive Date: 20120815
  Receipt Date: 20120810
  Transmission Date: 20120928
  Serious: Yes (Other)
  Sender: FDA-Public Use
  Company Number: US-BRISTOL-MYERS SQUIBB COMPANY-16833444

PATIENT
  Age: 33 Year
  Sex: Female
  Weight: 79 kg

DRUGS (2)
  1. IPILIMUMAB [Suspect]
     Indication: MALIGNANT MELANOMA
     Dosage: 231 MG:26MAR12-09MAY2012 (3 RD DOSE),237 MG:LAST DOSE ON 31MAY2012,. NO OF COURSE:4
     Route: 042
     Dates: start: 20120326
  2. PREDNISONE TAB [Concomitant]
     Indication: RASH

REACTIONS (2)
  - HEADACHE [None]
  - ABDOMINAL PAIN [None]
